FAERS Safety Report 5703201-5 (Version None)
Quarter: 2008Q2

REPORT INFORMATION
  Report Type: 
  Country: None (occurrence: None)
  Receive Date: 20080411
  Receipt Date: 20080313
  Transmission Date: 20081010
  Serious: No
  Sender: FDA-Public Use
  Company Number: US-BAYER-200817315NA

PATIENT
  Age: 18 Year
  Sex: Female
  Weight: 46 kg

DRUGS (2)
  1. YAZ [Suspect]
     Indication: MENSTRUATION IRREGULAR
     Route: 048
     Dates: start: 20080224
  2. IRON [Concomitant]
     Indication: ANAEMIA

REACTIONS (1)
  - PRURITUS [None]
